FAERS Safety Report 13578706 (Version 1)
Quarter: 2017Q2

REPORT INFORMATION
  Report Type: Spontaneous
  Country: BR (occurrence: BR)
  Receive Date: 20170524
  Receipt Date: 20170524
  Transmission Date: 20170830
  Serious: Yes (Other)
  Sender: FDA-Public Use
  Company Number: PHHY2017BR072120

PATIENT
  Age: 65 Year
  Sex: Male

DRUGS (12)
  1. FLUCONAZOLE. [Suspect]
     Active Substance: FLUCONAZOLE
     Dosage: 900 MG, QD
     Route: 065
  2. PREDNISONE. [Concomitant]
     Active Substance: PREDNISONE
     Dosage: 10 MG, QD
     Route: 048
  3. DEXAMETHASONE. [Concomitant]
     Active Substance: DEXAMETHASONE
     Indication: VOMITING
  4. FLUCONAZOLE. [Suspect]
     Active Substance: FLUCONAZOLE
     Dosage: 400 MG, QD
     Route: 065
  5. VORICONAZOLE. [Suspect]
     Active Substance: VORICONAZOLE
     Indication: CRYPTOCOCCOSIS
     Route: 065
  6. PREDNISONE. [Concomitant]
     Active Substance: PREDNISONE
     Indication: PRODUCT USED FOR UNKNOWN INDICATION
     Dosage: 60 MG, QD
     Route: 065
  7. FLUCONAZOLE. [Suspect]
     Active Substance: FLUCONAZOLE
     Indication: CRYPTOCOCCUS TEST POSITIVE
     Dosage: 800 MG, QD
     Route: 065
  8. FLUCONAZOLE. [Suspect]
     Active Substance: FLUCONAZOLE
     Dosage: UNK
  9. AMPHOTERICIN B. [Suspect]
     Active Substance: AMPHOTERICIN B
     Indication: CRYPTOCOCCUS TEST POSITIVE
     Dosage: 60 MG, QD
     Route: 042
  10. AMPHOTERICIN B. [Suspect]
     Active Substance: AMPHOTERICIN B
     Dosage: 150 MG, QD
     Route: 065
  11. ITRACONAZOLE. [Suspect]
     Active Substance: ITRACONAZOLE
     Indication: CRYPTOCOCCOSIS
     Route: 065
  12. DEXAMETHASONE. [Concomitant]
     Active Substance: DEXAMETHASONE
     Indication: HEADACHE
     Dosage: 4 MG, Q6H
     Route: 042

REACTIONS (3)
  - Paradoxical drug reaction [Unknown]
  - Condition aggravated [Unknown]
  - Drug resistance [Unknown]
